FAERS Safety Report 15887631 (Version 1)
Quarter: 2019Q1

REPORT INFORMATION
  Report Type: Report from Study
  Country: IT (occurrence: IT)
  Receive Date: 20190130
  Receipt Date: 20190130
  Transmission Date: 20190417
  Serious: Yes (Other)
  Sender: FDA-Public Use
  Company Number: IT-ACCORD-104054

PATIENT
  Age: 71 Year
  Sex: Female

DRUGS (4)
  1. DEXAMETHASONE. [Concomitant]
     Active Substance: DEXAMETHASONE
  2. PALONOSETRON. [Concomitant]
     Active Substance: PALONOSETRON HYDROCHLORIDE
  3. CISPLATIN ACCORD [Suspect]
     Active Substance: CISPLATIN
     Indication: BREAST CANCER
     Dosage: STRENGTH:1 MG / ML
     Route: 042
     Dates: start: 20171011, end: 20171011
  4. GLUTATHIONE [Concomitant]
     Active Substance: GLUTATHIONE

REACTIONS (3)
  - Abdominal pain upper [Recovering/Resolving]
  - Off label use [Unknown]
  - Hyperhidrosis [Recovering/Resolving]

NARRATIVE: CASE EVENT DATE: 20171011
